FAERS Safety Report 5515766-7 (Version None)
Quarter: 2007Q4

REPORT INFORMATION
  Report Type: 
  Country: None (occurrence: None)
  Receive Date: 20071114
  Receipt Date: 20071030
  Transmission Date: 20080405
  Serious: Yes (Hospitalization)
  Sender: FDA-Public Use
  Company Number: PHHO2007JP18753

PATIENT
  Age: 49 Year
  Sex: Male
  Weight: 83 kg

DRUGS (3)
  1. AMLODIPINE COMPARATOR COMP-AML+ [Suspect]
     Indication: HYPERTENSION
     Dosage: 5 MG, QD
     Route: 048
     Dates: start: 20070528, end: 20070610
  2. AMLODIPINE COMPARATOR COMP-AML+ [Suspect]
     Dosage: NO TREATMENT
     Dates: start: 20070611
  3. VALSARTAN, AMLODIPINE [Suspect]
     Indication: HYPERTENSION
     Dosage: DOUBLE BLIND
     Route: 048
     Dates: start: 20070611, end: 20071029

REACTIONS (3)
  - DERMATITIS [None]
  - ROAD TRAFFIC ACCIDENT [None]
  - TIBIA FRACTURE [None]
